FAERS Safety Report 4778776-3 (Version None)
Quarter: 2005Q3

REPORT INFORMATION
  Report Type: 
  Country: None (occurrence: None)
  Receive Date: 20050922
  Receipt Date: 20050919
  Transmission Date: 20060218
  Serious: Yes (Other)
  Sender: FDA-Public Use
  Company Number: DE-2005-012562

PATIENT
  Age: 34 Year
  Sex: Female

DRUGS (1)
  1. MIRENA [Suspect]
     Dosage: 20 UG/DAY, CONT, INTRA-UTERINE
     Route: 015
     Dates: start: 20030101

REACTIONS (7)
  - DERMOGRAPHISM [None]
  - EYE PAIN [None]
  - FEAR [None]
  - HEADACHE [None]
  - HOT FLUSH [None]
  - OEDEMA [None]
  - ULNAR NERVE PALSY [None]
